FAERS Safety Report 5742131-X (Version None)
Quarter: 2008Q2

REPORT INFORMATION
  Report Type: 
  Country: None (occurrence: None)
  Receive Date: 20080519
  Receipt Date: 20080514
  Transmission Date: 20081010
  Serious: Yes (Hospitalization, Other)
  Sender: FDA-Public Use
  Company Number: US-BRISTOL-MYERS SQUIBB COMPANY-13923750

PATIENT
  Age: 56 Year
  Sex: Male
  Weight: 101 kg

DRUGS (21)
  1. PRAVASTATIN SODIUM [Suspect]
     Indication: HYPERLIPIDAEMIA
     Route: 048
     Dates: start: 20070719, end: 20070825
  2. LASIX [Concomitant]
     Indication: HYPERTENSION
  3. DIOVAN [Concomitant]
     Indication: HYPERTENSION
  4. POTASSIUM CHLORIDE [Concomitant]
     Indication: CORONARY ARTERY DISEASE
     Dates: start: 20040601
  5. PAROXETINE HCL [Concomitant]
     Indication: DEPRESSION
     Dates: start: 20040601
  6. PREDNISONE [Concomitant]
     Indication: LEUKAEMIA
     Dosage: 1 DF = 5-60MG
  7. ASPIRIN [Concomitant]
     Indication: CORONARY ARTERY DISEASE
  8. ATENOLOL [Concomitant]
     Indication: HYPERTENSION
     Dosage: ALSO TAKEN AS 100MG
  9. PROPYL-THIOURACIL [Concomitant]
     Indication: THYROID DISORDER
  10. EFFEXOR [Concomitant]
     Indication: BIPOLAR DISORDER
     Dosage: ALSO TAKEN AS 100MG QD FROM 2006-5SEP07
  11. LAMICTAL [Concomitant]
     Indication: BIPOLAR DISORDER
     Dates: start: 20030101
  12. LORAZEPAM [Concomitant]
     Indication: INSOMNIA
     Dates: start: 20070201
  13. ADVIL PM [Concomitant]
     Indication: INSOMNIA
     Dosage: 1 DF = 1 TAB
     Dates: start: 20070801
  14. ZOLPIDEM [Concomitant]
     Indication: INSOMNIA
     Dates: start: 20070906
  15. PAXIL [Concomitant]
     Indication: DEPRESSION
  16. FOLIC ACID [Concomitant]
  17. AURALGAN [Concomitant]
  18. VITAMIN B-12 [Concomitant]
  19. BUMEX [Concomitant]
  20. OXYCODONE HCL [Concomitant]
     Indication: PAIN
  21. PLAVIX [Concomitant]

REACTIONS (5)
  - ANAEMIA [None]
  - CORONARY ARTERY DISEASE [None]
  - MYOCARDIAL INFARCTION [None]
  - OEDEMA [None]
  - POST PROCEDURAL INFECTION [None]
